FAERS Safety Report 12717617 (Version 1)
Quarter: 2016Q3

REPORT INFORMATION
  Report Type: Report from Study
  Country: CO (occurrence: CO)
  Receive Date: 20160906
  Receipt Date: 20160906
  Transmission Date: 20161109
  Serious: Yes (Other)
  Sender: FDA-Public Use
  Company Number: CO-JNJFOC-20160901280

PATIENT
  Age: 38 Year
  Sex: Male
  Weight: 110 kg

DRUGS (1)
  1. REMICADE [Suspect]
     Active Substance: INFLIXIMAB
     Indication: PSORIASIS
     Route: 042
     Dates: start: 20100127

REACTIONS (2)
  - Nasal congestion [Recovering/Resolving]
  - Histoplasmosis [Unknown]

NARRATIVE: CASE EVENT DATE: 20160622
